FAERS Safety Report 5157525-3 (Version None)
Quarter: 2006Q4

REPORT INFORMATION
  Report Type: 
  Country: None (occurrence: None)
  Receive Date: 20061127
  Receipt Date: 20061108
  Transmission Date: 20070319
  Serious: Yes (Death, Hospitalization)
  Sender: FDA-Public Use
  Company Number: DE-GLAXOSMITHKLINE-B0445671A

PATIENT
  Age: 53 Year
  Sex: Female
  Weight: 53 kg

DRUGS (5)
  1. TOPOTECAN [Suspect]
     Indication: OVARIAN CANCER
     Dosage: 4MGM2 WEEKLY
     Route: 042
     Dates: start: 20061025, end: 20061101
  2. DEXAMETHASONE 4MG TAB [Suspect]
     Indication: NAUSEA
  3. CARBOPLATIN [Concomitant]
     Dates: start: 20060501, end: 20060801
  4. PACLITAXEL [Concomitant]
     Dates: start: 20060501, end: 20060801
  5. GEMCITABINE [Concomitant]
     Dates: start: 20060501, end: 20060801

REACTIONS (6)
  - DIABETES MELLITUS INADEQUATE CONTROL [None]
  - DISEASE PROGRESSION [None]
  - DYSPNOEA [None]
  - GASTROINTESTINAL CARCINOMA [None]
  - GASTROINTESTINAL HAEMORRHAGE [None]
  - SHOCK HAEMORRHAGIC [None]
